FAERS Safety Report 8307851-1 (Version None)
Quarter: 2012Q2

REPORT INFORMATION
  Report Type: 
  Country: None (occurrence: None)
  Receive Date: 20120424
  Receipt Date: 20120418
  Transmission Date: 20120825
  Serious: Yes (Hospitalization, Other)
  Sender: FDA-Public Use
  Company Number: JP-TEVA-2011004990

PATIENT
  Sex: Female
  Weight: 47 kg

DRUGS (17)
  1. BENDAMUSTINE HYDROCHLORIDE [Suspect]
     Route: 042
     Dates: start: 20110829, end: 20110830
  2. ALLOPURINOL [Concomitant]
     Dates: start: 20110213, end: 20110216
  3. BENDAMUSTINE HYDROCHLORIDE [Suspect]
     Route: 042
     Dates: start: 20110427, end: 20110428
  4. MOSAPRIDE CITRATE HYDRATE [Concomitant]
     Dates: end: 20110617
  5. RASBURICASE [Concomitant]
     Indication: PROPHYLAXIS
     Dosage: 7.5 MILLIGRAM;
     Dates: start: 20110829, end: 20110829
  6. RITUXIMAB [Suspect]
     Indication: MANTLE CELL LYMPHOMA
     Dosage: 460 MILLIGRAM;
     Route: 042
     Dates: start: 20110829, end: 20110829
  7. ROSUVASTATIN CALCIUM [Concomitant]
     Dates: end: 20111114
  8. ACYCLOVIR [Concomitant]
     Indication: PROPHYLAXIS
     Dosage: 200 MILLIGRAM;
     Dates: start: 20110829, end: 20110830
  9. MECOBALAMIN [Concomitant]
     Indication: CEREBRAL INFARCTION
     Dosage: 1500 MILLIGRAM;
  10. BENDAMUSTINE HYDROCHLORIDE [Suspect]
     Indication: MANTLE CELL LYMPHOMA
     Route: 042
     Dates: start: 20110214, end: 20110215
  11. BENDAMUSTINE HYDROCHLORIDE [Suspect]
     Route: 042
     Dates: start: 20110725, end: 20110725
  12. GRANISETRON HCL [Concomitant]
     Dates: start: 20110427, end: 20110725
  13. GANCICLOVIR [Suspect]
     Indication: PROPHYLAXIS
     Route: 042
     Dates: start: 20110831, end: 20110911
  14. RAMOSETRON HYDROCHLORIDE [Concomitant]
     Dates: start: 20110214, end: 20110215
  15. GANCICLOVIR [Suspect]
     Dates: start: 20110912, end: 20110922
  16. CLOPIDOGREL BISULFATE [Concomitant]
  17. FAMOTIDINE [Concomitant]
     Indication: PROPHYLAXIS
     Dosage: 20 MILLIGRAM;

REACTIONS (13)
  - PLATELET COUNT DECREASED [None]
  - LYMPHOCYTE COUNT DECREASED [None]
  - HYPOKALAEMIA [None]
  - NEUTROPHIL COUNT DECREASED [None]
  - UPPER RESPIRATORY TRACT INFLAMMATION [None]
  - WEIGHT DECREASED [None]
  - CYTOMEGALOVIRUS CHORIORETINITIS [None]
  - FEBRILE NEUTROPENIA [None]
  - PNEUMONIA [None]
  - HYPOALBUMINAEMIA [None]
  - GAMMA-GLUTAMYLTRANSFERASE INCREASED [None]
  - ANAEMIA [None]
  - C-REACTIVE PROTEIN INCREASED [None]
